FAERS Safety Report 9549359 (Version 1)
Quarter: 2013Q3

REPORT INFORMATION
  Report Type: Spontaneous
  Country: GB (occurrence: None)
  Receive Date: 20130919
  Receipt Date: 20130919
  Transmission Date: 20140515
  Serious: Yes (Hospitalization, Other)
  Sender: FDA-Public Use
  Company Number: ABR_01114_2013

PATIENT
  Age: 80 Year
  Sex: Female

DRUGS (9)
  1. ERYTHROMYCIN [Suspect]
     Indication: LOWER RESPIRATORY TRACT INFECTION
     Route: 048
     Dates: start: 20130313, end: 20130319
  2. CO-AMOXICLAV [Suspect]
     Indication: LOWER RESPIRATORY TRACT INFECTION
     Route: 048
     Dates: start: 20130319, end: 20130320
  3. AMLODIPINE [Concomitant]
  4. ASPIRIN [Concomitant]
  5. BENDROFLUMETHIAZIDE [Concomitant]
  6. EZETIMIBE [Concomitant]
  7. FUROSEMIDE [Concomitant]
  8. PERINDOPRIL [Concomitant]
  9. PRAVASTATIN [Concomitant]

REACTIONS (4)
  - Prescribed underdose [None]
  - Cardiac failure [None]
  - Crepitations [None]
  - Wheezing [None]
